FAERS Safety Report 5428332-9 (Version None)
Quarter: 2007Q3

REPORT INFORMATION
  Report Type: 
  Country: None (occurrence: None)
  Receive Date: 20070731
  Receipt Date: 20070409
  Transmission Date: 20080115
  Serious: No
  Sender: FDA-Public Use
  Company Number: US200704002018

PATIENT
  Age: 73 Year
  Sex: Female

DRUGS (4)
  1. BYETTA [Suspect]
     Indication: TYPE 2 DIABETES MELLITUS
     Dosage: 5 UG, 2/D, SUBCUTANEOUS ;
     Route: 058
     Dates: start: 20070301, end: 20070401
  2. BYETTA [Suspect]
     Indication: TYPE 2 DIABETES MELLITUS
     Dosage: 10 UG 2/D SUBCUTANEOUS
     Route: 058
     Dates: start: 20070401
  3. GLYBURIDE         (GLIBENCLAMIN) [Concomitant]
  4. ACTOS          (PIGLITAZONE HCL) [Concomitant]

REACTIONS (7)
  - ABDOMINAL PAIN [None]
  - BLOOD GLUCOSE DECREASED [None]
  - CONSTIPATION [None]
  - DECREASED APPETITE [None]
  - FAECES DISCOLOURED [None]
  - MELAENA [None]
  - NAUSEA [None]
